FAERS Safety Report 6189966-X (Version None)
Quarter: 2009Q2

REPORT INFORMATION
  Report Type: 
  Country: None (occurrence: None)
  Receive Date: 20090514
  Receipt Date: 20090506
  Transmission Date: 20091009
  Serious: Yes (Other)
  Sender: FDA-Public Use
  Company Number: PHHY2009ES15748

PATIENT
  Age: 65 Year
  Sex: Male
  Weight: 70 kg

DRUGS (1)
  1. EXJADE [Suspect]
     Dosage: UNK

REACTIONS (2)
  - CATHETER RELATED COMPLICATION [None]
  - EMBOLISM VENOUS [None]
